FAERS Safety Report 14140972 (Version 2)
Quarter: 2017Q4

REPORT INFORMATION
  Report Type: Spontaneous
  Country: IT (occurrence: IT)
  Receive Date: 20171030
  Receipt Date: 20171103
  Transmission Date: 20180321
  Serious: Yes (Life-Threatening)
  Sender: FDA-Public Use
  Company Number: IT-TEVA-815497ACC

PATIENT
  Age: 39 Year
  Sex: Male

DRUGS (8)
  1. LAMIVUDINE. [Concomitant]
     Active Substance: LAMIVUDINE
  2. RITONAVIR. [Concomitant]
     Active Substance: RITONAVIR
  3. LINEZOLID. [Suspect]
     Active Substance: LINEZOLID
     Indication: ANTIBIOTIC THERAPY
     Dosage: 1200 MILLIGRAM DAILY;
     Route: 042
  4. CLINDAMYCIN. [Concomitant]
     Active Substance: CLINDAMYCIN
  5. METHADONE [Interacting]
     Active Substance: METHADONE HYDROCHLORIDE
     Indication: DEPENDENCE
     Dosage: 40 MILLIGRAM DAILY;
     Route: 065
  6. DARUNAVIR [Concomitant]
     Active Substance: DARUNAVIR
  7. CEFTRIAXONE. [Concomitant]
     Active Substance: CEFTRIAXONE
  8. AMOXICILLIN AND CLAVULANATE POTASSIUM [Concomitant]
     Active Substance: AMOXICILLIN\CLAVULANATE POTASSIUM

REACTIONS (2)
  - Serotonin syndrome [Unknown]
  - Drug interaction [Unknown]
